FAERS Safety Report 19979594 (Version 3)
Quarter: 2022Q1

REPORT INFORMATION
  Report Type: Report from Study
  Country: JP (occurrence: JP)
  Receive Date: 20211020
  Receipt Date: 20220331
  Transmission Date: 20220424
  Serious: Yes (Hospitalization, Other)
  Sender: FDA-Public Use
  Company Number: JP-SAKK-2021SA343507AA

PATIENT
  Age: 71 Year
  Sex: Male
  Weight: 67.7 kg

DRUGS (32)
  1. ISATUXIMAB [Suspect]
     Active Substance: ISATUXIMAB
     Indication: Plasma cell myeloma
     Dosage: 10 MG/KG, QOW
     Route: 041
     Dates: start: 20210805, end: 20210902
  2. ISATUXIMAB [Suspect]
     Active Substance: ISATUXIMAB
     Dosage: 10 MG/KG, QW
     Route: 041
     Dates: start: 20201008, end: 20201029
  3. ISATUXIMAB [Suspect]
     Active Substance: ISATUXIMAB
     Dosage: 10 MG/KG, QOW
     Route: 041
     Dates: start: 20201105, end: 20201217
  4. ISATUXIMAB [Suspect]
     Active Substance: ISATUXIMAB
     Dosage: 10 MG/KG, QOW
     Route: 041
     Dates: start: 20210107, end: 20210304
  5. ISATUXIMAB [Suspect]
     Active Substance: ISATUXIMAB
     Dosage: 10 MG/KG, QOW
     Route: 041
     Dates: start: 20210325, end: 20210603
  6. ISATUXIMAB [Suspect]
     Active Substance: ISATUXIMAB
     Dosage: 10 MG/KG, QOW
     Route: 041
     Dates: start: 20210624, end: 20210708
  7. ISATUXIMAB [Suspect]
     Active Substance: ISATUXIMAB
     Dosage: 10 MG/KG, 1X
     Route: 041
     Dates: start: 20210721, end: 20210721
  8. ISATUXIMAB [Suspect]
     Active Substance: ISATUXIMAB
     Dosage: 10 MG/KG, QOW
     Route: 041
     Dates: start: 20211111, end: 20211223
  9. DECADRON [Concomitant]
     Active Substance: DEXAMETHASONE
     Indication: Plasma cell myeloma
     Dosage: 20 MG, QW
     Route: 065
     Dates: start: 20210805, end: 20210902
  10. DECADRON [Concomitant]
     Active Substance: DEXAMETHASONE
     Dosage: 20 MG, QW
     Route: 065
     Dates: start: 20201008, end: 20201224
  11. DECADRON [Concomitant]
     Active Substance: DEXAMETHASONE
     Dosage: 20 MG, QW
     Route: 065
     Dates: start: 20210107, end: 20210610
  12. DECADRON [Concomitant]
     Active Substance: DEXAMETHASONE
     Dosage: 20 MG, QW
     Route: 065
     Dates: start: 20210624, end: 20210715
  13. DECADRON [Concomitant]
     Active Substance: DEXAMETHASONE
     Dosage: 20 MG, QW
     Route: 065
     Dates: start: 20210721, end: 20210728
  14. DECADRON [Concomitant]
     Active Substance: DEXAMETHASONE
     Dosage: 20 MG, QW
     Route: 065
     Dates: start: 20211118, end: 20211223
  15. POMALYST [Concomitant]
     Active Substance: POMALIDOMIDE
     Indication: Plasma cell myeloma
     Dosage: DAILY DOSE: 4 MG
     Route: 065
     Dates: start: 20210819, end: 20210902
  16. POMALYST [Concomitant]
     Active Substance: POMALIDOMIDE
     Dosage: DAILY DOSE: 4 MG
     Route: 065
     Dates: start: 20201008, end: 20201028
  17. POMALYST [Concomitant]
     Active Substance: POMALIDOMIDE
     Dosage: DAILY DOSE: 4 MG
     Route: 065
     Dates: start: 20201105, end: 20201125
  18. POMALYST [Concomitant]
     Active Substance: POMALIDOMIDE
     Dosage: DAILY DOSE: 4 MG
     Route: 065
     Dates: start: 20201203, end: 20201223
  19. POMALYST [Concomitant]
     Active Substance: POMALIDOMIDE
     Dosage: DAILY DOSE: 4 MG
     Route: 065
     Dates: start: 20210107, end: 20210127
  20. POMALYST [Concomitant]
     Active Substance: POMALIDOMIDE
     Dosage: DAILY DOSE: 4 MG
     Route: 065
     Dates: start: 20210204, end: 20210224
  21. POMALYST [Concomitant]
     Active Substance: POMALIDOMIDE
     Dosage: DAILY DOSE: 4 MG
     Route: 065
     Dates: start: 20210304, end: 20210317
  22. POMALYST [Concomitant]
     Active Substance: POMALIDOMIDE
     Dosage: DAILY DOSE: 4 MG
     Route: 065
     Dates: start: 20210325, end: 20210414
  23. POMALYST [Concomitant]
     Active Substance: POMALIDOMIDE
     Dosage: DAILY DOSE: 4 MG
     Route: 065
     Dates: start: 20210422, end: 20210512
  24. POMALYST [Concomitant]
     Active Substance: POMALIDOMIDE
     Dosage: DAILY DOSE: 4 MG
     Route: 065
     Dates: start: 20210520, end: 20210609
  25. POMALYST [Concomitant]
     Active Substance: POMALIDOMIDE
     Dosage: DAILY DOSE: 4 MG
     Route: 065
     Dates: start: 20210624, end: 20210714
  26. POMALYST [Concomitant]
     Active Substance: POMALIDOMIDE
     Dosage: DAILY DOSE: 4 MG
     Route: 065
     Dates: start: 20210721, end: 20210809
  27. POMALYST [Concomitant]
     Active Substance: POMALIDOMIDE
     Dosage: DAILY DOSE: 4 MG
     Route: 065
     Dates: start: 20211111, end: 20211201
  28. POMALYST [Concomitant]
     Active Substance: POMALIDOMIDE
     Dosage: DAILY DOSE: 4 MG
     Route: 065
     Dates: start: 20211209, end: 20211229
  29. DIPHENHYDRAMINE [Concomitant]
     Active Substance: DIPHENHYDRAMINE
     Indication: Chemotherapy side effect prophylaxis
     Dosage: DAILY DOSE: 30 MG
     Route: 065
     Dates: start: 20201008
  30. CALONAL [Concomitant]
     Active Substance: ACETAMINOPHEN
     Indication: Chemotherapy side effect prophylaxis
     Dosage: DAILY DOSE: 900 MG
     Route: 065
     Dates: start: 20201008
  31. SULFAMETHOXAZOLE\TRIMETHOPRIM [Concomitant]
     Active Substance: SULFAMETHOXAZOLE\TRIMETHOPRIM
     Indication: Infection prophylaxis
     Dosage: DAILY DOSE: 1 TABLET
     Route: 048
     Dates: start: 20201008
  32. FLUCONAZOLE [Concomitant]
     Active Substance: FLUCONAZOLE
     Indication: Infection prophylaxis
     Dosage: DAILY DOSE: 200 MG
     Route: 065
     Dates: start: 20201008

REACTIONS (1)
  - Aplasia pure red cell [Recovering/Resolving]

NARRATIVE: CASE EVENT DATE: 20210902
